FAERS Safety Report 5886164-1 (Version None)
Quarter: 2008Q3

REPORT INFORMATION
  Report Type: 
  Country: None (occurrence: None)
  Receive Date: 20080917
  Receipt Date: 20080912
  Transmission Date: 20090109
  Serious: Yes (Death, Hospitalization)
  Sender: FDA-Public Use
  Company Number: SE-BRISTOL-MYERS SQUIBB COMPANY-14033344

PATIENT
  Age: 61 Year
  Sex: Female

DRUGS (11)
  1. CETUXIMAB [Suspect]
     Indication: RECTAL CANCER
     Dosage: 1 DOSAGE FORM = 2 MG/ML
     Route: 042
     Dates: start: 20071128, end: 20071212
  2. ELOXATIN [Suspect]
     Indication: RECTAL CANCER
     Dates: start: 20071128, end: 20071212
  3. CAPECITABINE [Suspect]
     Indication: RECTAL CANCER
     Route: 048
     Dates: start: 20071128, end: 20071212
  4. LOPERAMIDE HCL [Concomitant]
  5. FELODIPINE [Concomitant]
     Route: 048
  6. METOCLOPRAMIDE [Concomitant]
     Dosage: TABLET FORM
     Route: 048
  7. PROPIOMAZINE [Concomitant]
     Route: 048
  8. DALTEPARIN SODIUM [Concomitant]
     Route: 058
  9. CODEINE PHOSPHATE AND ACETAMINOPHEN [Concomitant]
     Dosage: 1 DF=30MG+500MG. CODEIN 30 MG , PARACETAMOL 500 MG
     Route: 048
  10. SODIUM CHLORIDE 0.9% [Concomitant]
     Dosage: 500 MG CAPSULE FORM
     Route: 048
  11. GRANISETRON [Concomitant]
     Route: 048

REACTIONS (3)
  - DEHYDRATION [None]
  - DIARRHOEA [None]
  - VOMITING [None]
